FAERS Safety Report 7608700-7 (Version None)
Quarter: 2011Q3

REPORT INFORMATION
  Report Type: 
  Country: None (occurrence: None)
  Receive Date: 20110706
  Receipt Date: 20110621
  Transmission Date: 20111222
  Serious: Yes (Death, Hospitalization, Other)
  Sender: FDA-Public Use
  Company Number: 2011MA007887

PATIENT
  Age: 53 Year
  Sex: Female

DRUGS (3)
  1. FLUOXETINE [Suspect]
     Indication: SUICIDE ATTEMPT
     Dosage: 30 MG, PO
     Route: 048
  2. TRANYLCYPROMINE SULFATE [Concomitant]
  3. SERTRALINE HYDROCHLORIDE [Concomitant]

REACTIONS (10)
  - SEROTONIN SYNDROME [None]
  - MULTIPLE DRUG OVERDOSE INTENTIONAL [None]
  - HYPOTENSION [None]
  - CARDIAC ARREST [None]
  - TOXICITY TO VARIOUS AGENTS [None]
  - COMPLETED SUICIDE [None]
  - DISSEMINATED INTRAVASCULAR COAGULATION [None]
  - HAEMORRHAGE [None]
  - ALCOHOL POISONING [None]
  - RESPIRATORY FAILURE [None]
